FAERS Safety Report 6790393-2 (Version None)
Quarter: 2010Q2

REPORT INFORMATION
  Report Type: 
  Country: None (occurrence: None)
  Receive Date: 20100624
  Receipt Date: 20100614
  Transmission Date: 20101027
  Serious: Yes (Hospitalization, Other)
  Sender: FDA-Public Use
  Company Number: PHHY2009CL43518

PATIENT
  Age: 82 Year
  Sex: Female

DRUGS (4)
  1. EXFORGE [Suspect]
     Indication: INFARCTION
     Dosage: 160/10 MG, UNK
  2. NEXIUM [Concomitant]
  3. PLAVIX [Concomitant]
  4. HYDROCHLOROTHIAZIDE [Concomitant]
     Dosage: UNK

REACTIONS (2)
  - ANGIOPLASTY [None]
  - SKIN ULCER [None]
